FAERS Safety Report 10268947 (Version 1)
Quarter: 2014Q2

REPORT INFORMATION
  Report Type: Spontaneous
  Country: US (occurrence: US)
  Receive Date: 20140630
  Receipt Date: 20140630
  Transmission Date: 20141212
  Serious: Yes (Other)
  Sender: FDA-Public Use
  Company Number: US-PFIZER INC-2014177150

PATIENT
  Age: 57 Year
  Sex: Male
  Weight: 90.7 kg

DRUGS (8)
  1. LYRICA [Suspect]
     Indication: FIBROMYALGIA
     Dosage: 50 MG, 3X/DAY
     Route: 048
  2. LYRICA [Suspect]
     Indication: BURNING SENSATION
  3. LYRICA [Suspect]
     Indication: PAIN
  4. LISINOPRIL [Concomitant]
     Indication: HYPERTENSION
     Dosage: UNK
  5. METOPROLOL [Concomitant]
     Indication: HYPERTENSION
     Dosage: UNK
  6. NORCO [Concomitant]
     Indication: PAIN
     Dosage: UNK
  7. GLIPIZIDE [Concomitant]
     Indication: DIABETES MELLITUS
     Dosage: UNK
  8. INSULIN [Concomitant]
     Indication: DIABETES MELLITUS
     Dosage: WAS ON 50 UNITS OF INSULIN EARLIER AND NOW HE WAS BROUGHT DOWN TO TAKE 42 UNITS OF INSULIN

REACTIONS (1)
  - Angiopathy [Unknown]
